FAERS Safety Report 16500664 (Version 2)
Quarter: 2019Q3

REPORT INFORMATION
  Report Type: Spontaneous
  Country: US (occurrence: US)
  Receive Date: 20190701
  Receipt Date: 20190702
  Transmission Date: 20191004
  Serious: Yes (Hospitalization, Other)
  Sender: FDA-Public Use
  Company Number: US-PFIZER INC-2019279035

PATIENT
  Age: 65 Year
  Sex: Female

DRUGS (2)
  1. VFEND [Suspect]
     Active Substance: VORICONAZOLE
     Dosage: 300 MG, 2X/DAY (200MG TABLET TO DISPENSE 90 TABLETS, 50MG TABLET TO DISPENSE 120 TABLETS)
     Route: 048
  2. VFEND [Suspect]
     Active Substance: VORICONAZOLE
     Dosage: 300 MG, 2X/DAY (ONE 200 MG TABLET ALONG WITH TWO 50 MG TABLETS TWICE A DAY)
     Route: 048

REACTIONS (6)
  - Acute myeloid leukaemia [Not Recovered/Not Resolved]
  - Pneumonia [Unknown]
  - Neutropenia [Not Recovered/Not Resolved]
  - Cytopenia [Not Recovered/Not Resolved]
  - Pulmonary mass [Unknown]
  - Leukopenia [Not Recovered/Not Resolved]
